FAERS Safety Report 7992674-3 (Version None)
Quarter: 2011Q4

REPORT INFORMATION
  Report Type: 
  Country: None (occurrence: None)
  Receive Date: 20111219
  Receipt Date: 20110720
  Transmission Date: 20120403
  Serious: No
  Sender: FDA-Public Use
  Company Number: US-ASTRAZENECA-2011SE43555

PATIENT
  Age: 68 Year
  Sex: Male
  Weight: 86.2 kg

DRUGS (3)
  1. CRESTOR [Suspect]
     Route: 048
  2. ANTIHYPERTENSIVE [Concomitant]
     Indication: BLOOD PRESSURE ABNORMAL
  3. ANTIBIOTICS [Concomitant]

REACTIONS (1)
  - MUCOUS STOOLS [None]
